FAERS Safety Report 14900676 (Version 13)
Quarter: 2025Q1

REPORT INFORMATION
  Report Type: Spontaneous
  Country: US (occurrence: US)
  Receive Date: 20180516
  Receipt Date: 20250220
  Transmission Date: 20250409
  Serious: No
  Sender: PFIZER
  Company Number: US-PFIZER INC-2018198665

PATIENT
  Age: 60 Year
  Sex: Female
  Weight: 54.43 kg

DRUGS (5)
  1. XELJANZ XR [Suspect]
     Active Substance: TOFACITINIB CITRATE
     Indication: Rheumatoid arthritis
     Dosage: 11 MG, 1X/DAY (ONCE DAILY)
     Route: 048
  2. XELJANZ XR [Suspect]
     Active Substance: TOFACITINIB CITRATE
     Dosage: 11 MG, 1X/DAY (ONCE DAILY)
     Route: 048
  3. XELJANZ XR [Suspect]
     Active Substance: TOFACITINIB CITRATE
     Dosage: 11 MG, 1X/DAY
     Route: 048
  4. NORTRIPTYLINE [Concomitant]
     Active Substance: NORTRIPTYLINE
     Indication: Insomnia
  5. CALCIUM [Concomitant]
     Active Substance: CALCIUM

REACTIONS (7)
  - Purulent discharge [Unknown]
  - Heart rate increased [Recovering/Resolving]
  - Cardiac disorder [Unknown]
  - Hand deformity [Unknown]
  - Blood cholesterol increased [Recovered/Resolved]
  - Influenza [Unknown]
  - Condition aggravated [Unknown]
